FAERS Safety Report 11809464 (Version 2)
Quarter: 2015Q4

REPORT INFORMATION
  Report Type: Spontaneous
  Country: IT (occurrence: IT)
  Receive Date: 20151208
  Receipt Date: 20151215
  Transmission Date: 20160305
  Serious: Yes (Death, Hospitalization, Other)
  Sender: FDA-Public Use
  Company Number: IT-ORION CORPORATION ORION PHARMA-ENT 2015-1047

PATIENT
  Age: 64 Year
  Sex: Male

DRUGS (37)
  1. TAVOR [Concomitant]
     Active Substance: LORAZEPAM
     Dosage: STRENGTH: 2.5 MG
     Route: 065
  2. COMTAN [Suspect]
     Active Substance: ENTACAPONE
     Dosage: STRENGTH: 200 MG
     Route: 065
     Dates: start: 20061018
  3. MIRAPEXIN [Suspect]
     Active Substance: PRAMIPEXOLE
     Dosage: INCREASED TO 3 TIMES DAILY
     Route: 065
     Dates: start: 20041118
  4. MIRAPEXIN [Suspect]
     Active Substance: PRAMIPEXOLE
     Dosage: 0.7 MG HALF+HALF+1 TABLET DAILY
     Route: 065
     Dates: start: 20070627
  5. MADOPAR [Suspect]
     Active Substance: BENSERAZIDE HYDROCHLORIDE\LEVODOPA
     Indication: PARKINSON^S DISEASE
     Route: 065
  6. SIRIO [Suspect]
     Active Substance: CARBIDOPA\MELEVODOPA
     Route: 065
  7. XANAX [Concomitant]
     Active Substance: ALPRAZOLAM
     Dosage: STRENGTH: 0.50 MG
     Route: 065
     Dates: start: 20080208
  8. MOVICOL [Concomitant]
     Active Substance: POLYETHYLENE GLYCOL 3350\POTASSIUM CHLORIDE\SODIUM BICARBONATE\SODIUM CHLORIDE
     Route: 065
  9. ANDROCUR [Concomitant]
     Active Substance: CYPROTERONE ACETATE
     Dosage: STRENGTH: 100 MG
     Route: 065
  10. RAMERON [Concomitant]
     Route: 065
  11. LEVODOPA [Suspect]
     Active Substance: LEVODOPA
     Indication: PARKINSON^S DISEASE
     Route: 065
     Dates: start: 2006
  12. MIRAPEXIN [Suspect]
     Active Substance: PRAMIPEXOLE
     Dosage: 0.7 MG HALF + HALF + 1 TABLET DAILY
     Route: 065
     Dates: start: 20070115
  13. SIRIO [Suspect]
     Active Substance: CARBIDOPA\MELEVODOPA
     Indication: PARKINSON^S DISEASE
     Dosage: STRENGTH: 25/100
     Route: 065
  14. COMTAN [Suspect]
     Active Substance: ENTACAPONE
     Dosage: STRENGTH: 200 MG
     Route: 065
     Dates: start: 20080806
  15. STALEVO [Suspect]
     Active Substance: CARBIDOPA\ENTACAPONE\LEVODOPA
     Route: 065
  16. MIRAPEXIN [Suspect]
     Active Substance: PRAMIPEXOLE
     Indication: PARKINSON^S DISEASE
     Route: 065
     Dates: start: 20010101
  17. MIRAPEXIN [Suspect]
     Active Substance: PRAMIPEXOLE
     Dosage: 0.7 MG HALF AND 1 TABLET DAILY
     Route: 065
     Dates: start: 20071129
  18. MIRAPEXIN [Suspect]
     Active Substance: PRAMIPEXOLE
     Dosage: 0.7 MG HALF TABLET TWICE DAILY
     Route: 065
  19. SIRIO [Suspect]
     Active Substance: CARBIDOPA\MELEVODOPA
     Dosage: STRENGTH: 25/100
     Route: 065
     Dates: start: 20080208
  20. SIRIO [Suspect]
     Active Substance: CARBIDOPA\MELEVODOPA
     Dosage: STRENGTH: 25/100
     Route: 065
     Dates: start: 20080806
  21. COMTAN [Suspect]
     Active Substance: ENTACAPONE
     Indication: PARKINSON^S DISEASE
     Route: 065
     Dates: start: 20061018
  22. COMTAN [Suspect]
     Active Substance: ENTACAPONE
     Dosage: STRENGTH: 200 MG
     Route: 065
  23. ZANEDIP [Concomitant]
     Active Substance: LERCANIDIPINE HYDROCHLORIDE
     Route: 065
  24. SEREUPIN [Concomitant]
     Active Substance: PAROXETINE HYDROCHLORIDE
     Dosage: STRENGTH: 20 MG
     Route: 065
  25. MADOPAR [Suspect]
     Active Substance: BENSERAZIDE HYDROCHLORIDE\LEVODOPA
     Dosage: STRENGTH: 200/500; HALF OR THREE QUARTERS IN 4 ADMINISTRATIONS DAILY
     Route: 065
     Dates: start: 20040825
  26. MADOPAR [Suspect]
     Active Substance: BENSERAZIDE HYDROCHLORIDE\LEVODOPA
     Route: 065
  27. MADOPAR [Suspect]
     Active Substance: BENSERAZIDE HYDROCHLORIDE\LEVODOPA
     Dosage: HALF AND 4 TABLET IN 6 ADMINISTRATIONS DAILY
     Route: 065
  28. CASODEX [Concomitant]
     Active Substance: BICALUTAMIDE
     Indication: PROSTATE CANCER
     Route: 065
     Dates: start: 20080208
  29. MIRAPEXIN [Suspect]
     Active Substance: PRAMIPEXOLE
     Dosage: 0.7 MG HALF AND 1 TABLET DAILY
     Route: 065
     Dates: start: 20040825
  30. MIRAPEXIN [Suspect]
     Active Substance: PRAMIPEXOLE
     Dosage: 0.7 MG HALF TABLET TWICE DAILY
     Route: 065
     Dates: start: 20070323
  31. MADOPAR [Suspect]
     Active Substance: BENSERAZIDE HYDROCHLORIDE\LEVODOPA
     Dosage: DECREASED 3 ADMINISTRATIONS DAILY
     Route: 065
     Dates: start: 20041118
  32. MADOPAR [Suspect]
     Active Substance: BENSERAZIDE HYDROCHLORIDE\LEVODOPA
     Dosage: TWO THIRD OF TABLET IN 6 ADMINISTRATIONS DAILY
     Route: 065
     Dates: start: 20080806
  33. MADOPAR [Suspect]
     Active Substance: BENSERAZIDE HYDROCHLORIDE\LEVODOPA
     Route: 065
     Dates: start: 20080829
  34. AZILECT [Concomitant]
     Active Substance: RASAGILINE MESYLATE
     Route: 065
  35. TAVOR [Concomitant]
     Active Substance: LORAZEPAM
     Dosage: STRENGTH: 2.5 MG
     Route: 065
  36. MADOPAR [Suspect]
     Active Substance: BENSERAZIDE HYDROCHLORIDE\LEVODOPA
     Dosage: STRENGTH: 200/50, 1 OR 3 QUARTERS FOR 4 DAILY
     Route: 065
  37. SIRIO [Suspect]
     Active Substance: CARBIDOPA\MELEVODOPA
     Dosage: STRENGTH: 25/100
     Route: 065

REACTIONS (18)
  - Parkinson^s disease [Unknown]
  - Malaise [Unknown]
  - Hypersexuality [Unknown]
  - Compulsive shopping [Unknown]
  - Dyskinesia [Unknown]
  - Compulsive hoarding [Unknown]
  - Somnolence [Unknown]
  - Joint dislocation [Unknown]
  - Hallucination [Unknown]
  - Death [Fatal]
  - Presyncope [Unknown]
  - Fall [Unknown]
  - Pathological gambling [Unknown]
  - Alcohol abuse [Unknown]
  - Drug abuse [Unknown]
  - Restless legs syndrome [Unknown]
  - Spinal osteoarthritis [Unknown]
  - Scoliosis [Unknown]

NARRATIVE: CASE EVENT DATE: 20070323
